FAERS Safety Report 8815244 (Version 1)
Quarter: 2012Q4

REPORT INFORMATION
  Report Type: 
  Country: DE (occurrence: DE)
  Receive Date: 20120928
  Receipt Date: 20120928
  Transmission Date: 20130627
  Serious: Yes (Hospitalization)
  Sender: FDA-Public Use
  Company Number: DE-ELI_LILLY_AND_COMPANY-DE201209005106

PATIENT
  Age: 79 Year
  Sex: Female

DRUGS (2)
  1. HUMINSULIN REGULAR [Suspect]
     Indication: TYPE 2 DIABETES MELLITUS
     Dosage: UNK
     Route: 058
     Dates: start: 2006
  2. MARCUMAR [Concomitant]

REACTIONS (1)
  - Dialysis [Not Recovered/Not Resolved]
